FAERS Safety Report 5748499-2 (Version None)
Quarter: 2008Q2

REPORT INFORMATION
  Report Type: 
  Country: None (occurrence: None)
  Receive Date: 20080523
  Receipt Date: 20080515
  Transmission Date: 20081010
  Serious: Yes (Hospitalization, Other)
  Sender: FDA-Public Use
  Company Number: CL-PFIZER INC-2008041807

PATIENT
  Age: 6 Year
  Sex: Female

DRUGS (2)
  1. SERTRALINE [Suspect]
     Indication: POST-TRAUMATIC STRESS DISORDER
     Route: 048
  2. ALPRAZOLAM [Concomitant]
     Route: 048

REACTIONS (1)
  - EYE MOVEMENT DISORDER [None]
